FAERS Safety Report 24527361 (Version 1)
Quarter: 2024Q4

REPORT INFORMATION
  Report Type: Report from Study
  Country: DE (occurrence: DE)
  Receive Date: 20241021
  Receipt Date: 20241021
  Transmission Date: 20250115
  Serious: Yes (Hospitalization, Other)
  Sender: ROCHE
  Company Number: DE-ROCHE-3215319

PATIENT
  Age: 32 Year
  Sex: Female

DRUGS (4)
  1. OCREVUS [Suspect]
     Active Substance: OCRELIZUMAB
     Indication: Relapsing-remitting multiple sclerosis
     Dosage: SECOND DOSE: 24/JAN/2022, FIRST MAINTENANCE DOSE: 11/JUL/2022
     Route: 042
     Dates: start: 20220110
  2. CHOLECALCIFEROL [Concomitant]
     Active Substance: CHOLECALCIFEROL
  3. CYMBALTA [Concomitant]
     Active Substance: DULOXETINE HYDROCHLORIDE
  4. NABIXIMOLS [Concomitant]
     Active Substance: NABIXIMOLS
     Dosage: FREQUENCY TEXT:3 PUFFS AT NIGHT

REACTIONS (16)
  - Feeling cold [Recovered/Resolved]
  - Fatigue [Recovered/Resolved]
  - Body temperature increased [Recovered/Resolved]
  - Paraesthesia [Recovered/Resolved]
  - Neuralgia [Recovered/Resolved]
  - Multiple sclerosis pseudo relapse [Recovering/Resolving]
  - Walking disability [Recovering/Resolving]
  - Headache [Recovered/Resolved]
  - Psoriasis [Recovering/Resolving]
  - Pharyngitis streptococcal [Recovered/Resolved]
  - Ear inflammation [Unknown]
  - Cystitis noninfective [Recovered/Resolved]
  - C-reactive protein increased [Not Recovered/Not Resolved]
  - Ageusia [Recovered/Resolved]
  - Hypoaesthesia oral [Recovered/Resolved]
  - Deafness unilateral [Not Recovered/Not Resolved]

NARRATIVE: CASE EVENT DATE: 20220110
